FAERS Safety Report 5369523-5 (Version None)
Quarter: 2007Q2

REPORT INFORMATION
  Report Type: 
  Country: None (occurrence: None)
  Receive Date: 20070625
  Receipt Date: 20070621
  Transmission Date: 20071010
  Serious: Yes (Hospitalization)
  Sender: FDA-Public Use
  Company Number: B0471642A

PATIENT
  Sex: Male

DRUGS (4)
  1. TRIZIVIR [Suspect]
     Indication: ANTIVIRAL PROPHYLAXIS
     Dosage: 1TAB TWICE PER DAY
     Dates: start: 20070425
  2. ZIDOVUDINE [Suspect]
     Indication: ANTIVIRAL PROPHYLAXIS
     Dates: start: 20070510, end: 20070510
  3. ZIDOVUDINE [Suspect]
     Dosage: 4MGK TWICE PER DAY
     Route: 048
  4. NEVIRAPINE [Suspect]
     Indication: ANTIVIRAL PROPHYLAXIS
     Dosage: 6MG SINGLE DOSE
     Route: 048
     Dates: start: 20070510, end: 20070510

REACTIONS (6)
  - ANAEMIA [None]
  - JAUNDICE [None]
  - PALLOR [None]
  - PREMATURE BABY [None]
  - RESPIRATION ABNORMAL [None]
  - RESPIRATORY DISTRESS [None]
